FAERS Safety Report 11563634 (Version 2)
Quarter: 2015Q4

REPORT INFORMATION
  Report Type: Spontaneous
  Country: US (occurrence: US)
  Receive Date: 20150928
  Receipt Date: 20151109
  Transmission Date: 20160304
  Serious: No
  Sender: FDA-Public Use
  Company Number: US-PFIZER INC-2015320569

PATIENT
  Age: 63 Year
  Sex: Male
  Weight: 100 kg

DRUGS (6)
  1. CAVERJECT IMPULSE [Suspect]
     Active Substance: ALPROSTADIL
     Dosage: 5 ?G, DAILY, WHEN NEEDED
     Route: 058
  2. CAVERJECT IMPULSE [Suspect]
     Active Substance: ALPROSTADIL
     Indication: ERECTILE DYSFUNCTION
     Dosage: 10 ?G, DAILY, WHEN NEEDED
     Route: 058
  3. CAVERJECT IMPULSE [Suspect]
     Active Substance: ALPROSTADIL
     Dosage: 10 ?G, DAILY, WHEN NEEDED
     Route: 058
  4. CAVERJECT IMPULSE [Suspect]
     Active Substance: ALPROSTADIL
     Dosage: 7.5 ?G, DAILY, WHEN NEEDED
     Route: 058
  5. CAVERJECT IMPULSE [Suspect]
     Active Substance: ALPROSTADIL
     Dosage: 5 ?G, DAILY, WHEN NEEDED
     Route: 058
  6. CAVERJECT IMPULSE [Suspect]
     Active Substance: ALPROSTADIL
     Dosage: 7.5 ?G, DAILY, WHEN NEEDED
     Route: 058

REACTIONS (3)
  - Drug ineffective [Unknown]
  - Drug intolerance [Unknown]
  - Product quality issue [Unknown]
